FAERS Safety Report 25028401 (Version 1)
Quarter: 2025Q1

REPORT INFORMATION
  Report Type: Report from Study
  Country: US (occurrence: US)
  Receive Date: 20250301
  Receipt Date: 20250301
  Transmission Date: 20250408
  Serious: No
  Sender: ACADIA PHARMACEUTICALS
  Company Number: US-ACADIA PHARMACEUTICALS INC.-ACA-2025-TRF-001655

PATIENT
  Sex: Female

DRUGS (1)
  1. DAYBUE [Suspect]
     Active Substance: TROFINETIDE
     Indication: Rett syndrome
     Dosage: 15 MILLILITER, BID
     Route: 048

REACTIONS (5)
  - Influenza [Not Recovered/Not Resolved]
  - Illness [Recovered/Resolved]
  - Hyperactive pharyngeal reflex [Recovered/Resolved]
  - Vomiting [Recovered/Resolved]
  - Underdose [Recovered/Resolved]
